FAERS Safety Report 20491107 (Version 1)
Quarter: 2022Q1

REPORT INFORMATION
  Report Type: Spontaneous
  Country: US (occurrence: None)
  Receive Date: 20220218
  Receipt Date: 20220218
  Transmission Date: 20220423
  Serious: Yes (Other)
  Sender: FDA-Public Use
  Company Number: None

PATIENT
  Age: 31 Year
  Sex: Male
  Weight: 90.18 kg

DRUGS (2)
  1. PROCHLORPERAZINE [Suspect]
     Active Substance: PROCHLORPERAZINE
     Indication: Migraine
     Dosage: OTHER FREQUENCY : ONCE;?
     Route: 048
     Dates: start: 20211219, end: 20211219
  2. NAPROXEN [Concomitant]
     Active Substance: NAPROXEN

REACTIONS (2)
  - Asthma [None]
  - Oxygen saturation decreased [None]

NARRATIVE: CASE EVENT DATE: 20211219
